FAERS Safety Report 8438726-5 (Version None)
Quarter: 2012Q2

REPORT INFORMATION
  Report Type: 
  Country: None (occurrence: None)
  Receive Date: 20120611
  Receipt Date: 20120611
  Transmission Date: 20120825
  Serious: No
  Sender: FDA-Public Use
  Company Number: None

PATIENT
  Sex: Female

DRUGS (1)
  1. SIMPONI [Suspect]
     Dosage: 50MG QMN SQ
     Route: 058
     Dates: start: 20110916, end: 20120512

REACTIONS (5)
  - MOOD SWINGS [None]
  - ANXIETY [None]
  - WEIGHT DECREASED [None]
  - DIARRHOEA [None]
  - DIVERTICULITIS [None]
